FAERS Safety Report 16940871 (Version 1)
Quarter: 2019Q4

REPORT INFORMATION
  Report Type: Report from Study
  Country: JP (occurrence: JP)
  Receive Date: 20191021
  Receipt Date: 20191021
  Transmission Date: 20200122
  Serious: Yes (Other)
  Sender: FDA-Public Use
  Company Number: JP-ACTELION-A-CH2018-172199

PATIENT
  Age: 79 Year
  Sex: Female

DRUGS (6)
  1. BERASUS [Concomitant]
     Active Substance: BERAPROST SODIUM
  2. FUROSEMIDE. [Concomitant]
     Active Substance: FUROSEMIDE
  3. ANPLAG [Concomitant]
     Active Substance: SARPOGRELATE
  4. SALIGREN [Concomitant]
  5. TRACLEER [Suspect]
     Active Substance: BOSENTAN
     Indication: SCLERODERMA ASSOCIATED DIGITAL ULCER
     Dosage: 62.5 MG, BID
     Route: 048
     Dates: start: 20150903
  6. JUVELA [Concomitant]
     Active Substance: .ALPHA.-TOCOPHEROL\RETINOL

REACTIONS (6)
  - Compression fracture [Not Recovered/Not Resolved]
  - Alanine aminotransferase increased [Recovered/Resolved]
  - Aspartate aminotransferase increased [Recovered/Resolved]
  - Gamma-glutamyltransferase increased [Recovered/Resolved]
  - Liver disorder [Recovered/Resolved]
  - Blood alkaline phosphatase abnormal [Recovered/Resolved]

NARRATIVE: CASE EVENT DATE: 20151015
